FAERS Safety Report 21753294 (Version 1)
Quarter: 2022Q4

REPORT INFORMATION
  Report Type: Spontaneous
  Country: US (occurrence: US)
  Receive Date: 20221220
  Receipt Date: 20221220
  Transmission Date: 20230113
  Serious: No
  Sender: FDA-Public Use
  Company Number: US-SA-SAC20221216001324

PATIENT
  Sex: Female

DRUGS (6)
  1. AUBAGIO [Suspect]
     Active Substance: TERIFLUNOMIDE
     Indication: Multiple sclerosis
     Dosage: 1 TABLET, DAILY
     Route: 048
     Dates: start: 2019
  2. BACLOFEN [Concomitant]
     Active Substance: BACLOFEN
  3. BIOTIN [Concomitant]
     Active Substance: BIOTIN
  4. LAMOTRIGINE [Concomitant]
     Active Substance: LAMOTRIGINE
  5. VITAMINS NOS [Concomitant]
     Active Substance: VITAMINS
  6. ADVIL [Concomitant]
     Active Substance: IBUPROFEN

REACTIONS (3)
  - Burning sensation [Unknown]
  - Hypoaesthesia [Unknown]
  - Paraesthesia [Unknown]
